FAERS Safety Report 9415226 (Version 1)
Quarter: 2013Q3

REPORT INFORMATION
  Report Type: Spontaneous
  Country: FR (occurrence: FR)
  Receive Date: 20130723
  Receipt Date: 20130723
  Transmission Date: 20140515
  Serious: Yes (Other)
  Sender: FDA-Public Use
  Company Number: FR-WATSON-2013-12365

PATIENT
  Age: 59 Year
  Sex: Female

DRUGS (2)
  1. HYDROXYZINE PAMOATE (WATSON LABORATORIES) [Suspect]
     Indication: RHINITIS ALLERGIC
     Dosage: UNK
     Route: 065
  2. METHOTREXATE [Concomitant]
     Indication: PSORIASIS
     Dosage: 15 MG, 1/WEEK
     Route: 065
     Dates: start: 2009

REACTIONS (1)
  - Rash maculo-papular [Recovering/Resolving]
